FAERS Safety Report 18310451 (Version 1)
Quarter: 2020Q3

REPORT INFORMATION
  Report Type: Spontaneous
  Country: US (occurrence: US)
  Receive Date: 20200924
  Receipt Date: 20200924
  Transmission Date: 20201103
  Serious: No
  Sender: FDA-Public Use
  Company Number: US-ENDO PHARMACEUTICALS INC-2020-004954

PATIENT
  Sex: Female

DRUGS (3)
  1. CLARITIN [Concomitant]
     Active Substance: LORATADINE
     Indication: HYPERSENSITIVITY
  2. CLONAZEPAM. [Suspect]
     Active Substance: CLONAZEPAM
     Indication: DYSPHAGIA
     Dosage: 0.25 MG, (0.125 MG TABLETS TWICE) DAILY
     Route: 048
     Dates: start: 202007
  3. PROMETHAZINE [Concomitant]
     Active Substance: PROMETHAZINE HYDROCHLORIDE
     Indication: PRODUCT USED FOR UNKNOWN INDICATION

REACTIONS (7)
  - Throat irritation [Recovered/Resolved]
  - Product odour abnormal [Unknown]
  - Tongue discomfort [Recovered/Resolved]
  - Dysgeusia [Unknown]
  - Off label use [Not Recovered/Not Resolved]
  - Glossitis [Recovered/Resolved]
  - Product solubility abnormal [Unknown]

NARRATIVE: CASE EVENT DATE: 201907
